FAERS Safety Report 8045522-X (Version None)
Quarter: 2012Q1

REPORT INFORMATION
  Report Type: 
  Country: None (occurrence: None)
  Receive Date: 20120113
  Receipt Date: 20120106
  Transmission Date: 20120608
  Serious: Yes (Hospitalization)
  Sender: FDA-Public Use
  Company Number: BR-MEDIMMUNE-MEDI-0013135

PATIENT
  Sex: Male
  Weight: 13 kg

DRUGS (2)
  1. UNKNOWN VACCINCE [Concomitant]
     Dates: start: 20101101
  2. SYNAGIS [Suspect]
     Indication: BRONCHOPULMONARY DYSPLASIA
     Route: 030
     Dates: start: 20090708, end: 20091101

REACTIONS (8)
  - INFLUENZA [None]
  - VOMITING [None]
  - PYREXIA [None]
  - PLATELET COUNT DECREASED [None]
  - DENGUE FEVER [None]
  - CONJUNCTIVITIS [None]
  - COUGH [None]
  - RHINORRHOEA [None]
